FAERS Safety Report 5071768-9 (Version None)
Quarter: 2006Q3

REPORT INFORMATION
  Report Type: 
  Country: None (occurrence: None)
  Receive Date: 20060801
  Receipt Date: 20060724
  Transmission Date: 20061208
  Serious: Yes (Hospitalization, Other)
  Sender: FDA-Public Use
  Company Number: JP200605002513

PATIENT
  Age: 50 Year
  Sex: Male
  Weight: 59 kg

DRUGS (5)
  1. GEMZAR [Suspect]
     Indication: GALLBLADDER CANCER STAGE IV
     Dosage: SEE IMAGE
     Route: 042
     Dates: start: 20050909, end: 20050916
  2. GEMZAR [Suspect]
     Indication: GALLBLADDER CANCER STAGE IV
     Dosage: SEE IMAGE
     Route: 042
     Dates: start: 20051202, end: 20060120
  3. THERAPEUTIC RADIOPHARMACEUTICALS [Concomitant]
  4. URSO 250 [Concomitant]
  5. ZANTAC [Concomitant]

REACTIONS (2)
  - PORTAL VEIN THROMBOSIS [None]
  - WHITE BLOOD CELL COUNT DECREASED [None]
